FAERS Safety Report 9350766 (Version 1)
Quarter: 2013Q2

REPORT INFORMATION
  Report Type: Spontaneous
  Country: FR (occurrence: FR)
  Receive Date: 20130617
  Receipt Date: 20130617
  Transmission Date: 20140414
  Serious: Yes (Hospitalization)
  Sender: FDA-Public Use
  Company Number: PHHY2013FR060284

PATIENT
  Age: 64 Year
  Sex: Female

DRUGS (5)
  1. FEMARA [Suspect]
     Indication: INVASIVE DUCTAL BREAST CARCINOMA
     Dosage: UNK UKN, UNK
     Route: 048
     Dates: end: 20130419
  2. PAMIDRONATE DISODIUM [Suspect]
     Dosage: 1 DF, UNK
     Route: 042
     Dates: start: 20130410, end: 20130410
  3. METFORMIN [Suspect]
     Indication: TYPE 2 DIABETES MELLITUS
     Dosage: UNK UKN, UNK
     Route: 048
     Dates: end: 20130425
  4. VISIPAQUE [Suspect]
     Dosage: 1 DF, UNK
     Route: 042
     Dates: start: 20130311, end: 20130311
  5. TRIATEC [Suspect]
     Indication: HYPERTENSION
     Dosage: UNK UKN, UNK
     Route: 048
     Dates: end: 20130426

REACTIONS (1)
  - Drug reaction with eosinophilia and systemic symptoms [Recovered/Resolved]
